FAERS Safety Report 6245361-6 (Version None)
Quarter: 2009Q2

REPORT INFORMATION
  Report Type: 
  Country: None (occurrence: None)
  Receive Date: 20090625
  Receipt Date: 20090618
  Transmission Date: 20091009
  Serious: Yes (Other)
  Sender: FDA-Public Use
  Company Number: US-PFIZER INC-2004112795

PATIENT
  Sex: Female

DRUGS (4)
  1. PROVERA [Suspect]
     Indication: HORMONE REPLACEMENT THERAPY
     Dosage: 10 MG, UNK
     Route: 048
     Dates: start: 19900101, end: 19921201
  2. PREMARIN [Suspect]
     Indication: HORMONE REPLACEMENT THERAPY
     Dosage: 0.625 MG, UNK
     Dates: start: 19900101, end: 19921201
  3. INDOCIN [Concomitant]
     Indication: ARTHRITIS
     Dosage: 25 MG, UNK
     Dates: start: 19840101, end: 19990101
  4. FLEXERIL [Concomitant]
     Indication: ARTHRITIS
     Dosage: 10 MG, UNK
     Dates: start: 19840101, end: 19990101

REACTIONS (1)
  - BREAST CANCER FEMALE [None]
